FAERS Safety Report 6042025-9 (Version None)
Quarter: 2009Q1

REPORT INFORMATION
  Report Type: 
  Country: None (occurrence: None)
  Receive Date: 20090116
  Receipt Date: 20090112
  Transmission Date: 20090719
  Serious: Yes (Life-Threatening, Hospitalization)
  Sender: FDA-Public Use
  Company Number: GB-MERCK-0901GBR00029

PATIENT
  Age: 84 Year
  Sex: Male
  Weight: 61 kg

DRUGS (7)
  1. ZOCOR [Suspect]
     Indication: PROPHYLAXIS
     Route: 048
     Dates: start: 20081029, end: 20081130
  2. ACETAMINOPHEN AND DIHYDROCODEINE BITARTRATE [Concomitant]
     Route: 048
  3. FUROSEMIDE [Concomitant]
     Route: 048
  4. IPRATROPIUM BROMIDE [Concomitant]
  5. PERINDOPRIL [Concomitant]
     Route: 048
  6. SPIRONOLACTONE [Concomitant]
     Route: 048
  7. WARFARIN [Concomitant]
     Route: 048

REACTIONS (5)
  - ASTHENIA [None]
  - DYSPNOEA [None]
  - MOBILITY DECREASED [None]
  - MYOPATHY [None]
  - RHABDOMYOLYSIS [None]
